FAERS Safety Report 5753906-5 (Version None)
Quarter: 2008Q2

REPORT INFORMATION
  Report Type: 
  Country: None (occurrence: None)
  Receive Date: 20080530
  Receipt Date: 20080521
  Transmission Date: 20081010
  Serious: Yes (Hospitalization)
  Sender: FDA-Public Use
  Company Number: B0522168A

PATIENT
  Age: 62 Year
  Sex: Female

DRUGS (4)
  1. ZOPHREN [Suspect]
     Indication: DRUG USE FOR UNKNOWN INDICATION
     Route: 042
     Dates: start: 20080326, end: 20080326
  2. FLUOROURACIL [Suspect]
     Indication: DRUG USE FOR UNKNOWN INDICATION
     Route: 042
     Dates: start: 20080326, end: 20080327
  3. ELOXATIN [Suspect]
     Indication: DRUG USE FOR UNKNOWN INDICATION
     Dosage: 150MG SINGLE DOSE
     Route: 042
     Dates: start: 20080326, end: 20080326
  4. PREDNISONE [Suspect]
     Indication: DRUG USE FOR UNKNOWN INDICATION
     Dosage: 40MG SINGLE DOSE
     Route: 042
     Dates: start: 20080326, end: 20080326

REACTIONS (2)
  - CHEST PAIN [None]
  - SUBENDOCARDIAL ISCHAEMIA [None]
